FAERS Safety Report 4935541-1 (Version None)
Quarter: 2006Q1

REPORT INFORMATION
  Report Type: 
  Country: None (occurrence: None)
  Receive Date: 20060307
  Receipt Date: 20050830
  Transmission Date: 20060701
  Serious: No
  Sender: FDA-Public Use
  Company Number: US-GLAXOSMITHKLINE-A0572386A

PATIENT
  Sex: Female

DRUGS (9)
  1. REQUIP [Suspect]
     Indication: RESTLESS LEGS SYNDROME
     Dosage: 1.5MG PER DAY
     Route: 048
     Dates: start: 20050601
  2. LIPITOR [Concomitant]
  3. NORVASC [Concomitant]
  4. METOPROLOL [Concomitant]
  5. PERIOSTAT [Concomitant]
  6. LEXAPRO [Concomitant]
  7. PEPCID [Concomitant]
  8. HUMALOG [Concomitant]
  9. LANTUS [Concomitant]

REACTIONS (2)
  - BLOOD IRON DECREASED [None]
  - MUSCLE SPASMS [None]
